FAERS Safety Report 15364374 (Version 1)
Quarter: 2018Q3

REPORT INFORMATION
  Report Type: Spontaneous
  Country: US (occurrence: US)
  Receive Date: 20180909
  Receipt Date: 20180909
  Transmission Date: 20181010
  Serious: No
  Sender: FDA-Public Use
  Company Number: US-BAUSCH-BL-2018-004373

PATIENT
  Sex: Female

DRUGS (1)
  1. COLAZAL [Suspect]
     Active Substance: BALSALAZIDE DISODIUM
     Indication: PRODUCT USED FOR UNKNOWN INDICATION
     Dosage: 8 MONTHS AGO
     Route: 065
     Dates: start: 2017

REACTIONS (2)
  - Pain [Recovered/Resolved]
  - Unevaluable event [Recovered/Resolved]
